FAERS Safety Report 25041835 (Version 3)
Quarter: 2025Q2

REPORT INFORMATION
  Report Type: Report from Study
  Country: US (occurrence: US)
  Receive Date: 20250305
  Receipt Date: 20250417
  Transmission Date: 20250717
  Serious: Yes (Hospitalization, Other)
  Sender: BAYER
  Company Number: US-BAYER-2025A026226

PATIENT
  Age: 56 Year
  Sex: Female
  Weight: 70.295 kg

DRUGS (20)
  1. STIVARGA [Suspect]
     Active Substance: REGORAFENIB MONOHYDRATE
     Indication: Colon cancer
     Dosage: 160 MG, QD
     Route: 048
     Dates: start: 20241228
  2. STIVARGA [Suspect]
     Active Substance: REGORAFENIB MONOHYDRATE
     Indication: Colon cancer
     Dosage: 80 MG, QD(21 DAYS ON THEN 7 DAYS OFF)
     Route: 048
     Dates: start: 20250206
  3. STIVARGA [Suspect]
     Active Substance: REGORAFENIB MONOHYDRATE
     Indication: Metastases to liver
     Dosage: 120 MG, QD  (FOR 21 DAYS, 7 DAYS OFF)
     Route: 048
     Dates: start: 20250305
  4. IRINOTECAN [Concomitant]
     Active Substance: IRINOTECAN
     Route: 042
     Dates: start: 20240930, end: 20241210
  5. LEUCOVORIN [Concomitant]
     Active Substance: LEUCOVORIN\LEUCOVORIN CALCIUM
     Route: 042
     Dates: start: 20240930, end: 20241210
  6. FLUOROURACIL [Concomitant]
     Active Substance: FLUOROURACIL
     Route: 042
     Dates: start: 20240930, end: 20241210
  7. ATROPINE [Concomitant]
     Active Substance: ATROPINE
     Route: 042
     Dates: start: 20240930, end: 20241210
  8. NIVESTYM [Concomitant]
     Active Substance: FILGRASTIM-AAFI
     Route: 058
     Dates: start: 20241122, end: 20241217
  9. FLUCELVAX NOS [Concomitant]
     Active Substance: INFLUENZA A VIRUS A/BRISBANE/10/2010 (H1N1) ANTIGEN (MDCK CELL DERIVED, PROPIOLACTONE INACTIVATED)\I
     Indication: Colon cancer
     Dates: start: 20241025, end: 20241025
  10. CATHFLO ACTIVASE [Concomitant]
     Active Substance: ALTEPLASE
     Indication: Colon cancer
     Dates: start: 20241025, end: 20241025
  11. SODIUM CHLORIDE [Concomitant]
     Active Substance: SODIUM CHLORIDE
     Route: 042
     Dates: start: 20241209, end: 20241227
  12. VALCYTE [Concomitant]
     Active Substance: VALGANCICLOVIR HYDROCHLORIDE
     Dosage: 900 MG, TID
     Route: 048
  13. ACETAMINOPHEN\HYDROCODONE [Concomitant]
     Active Substance: ACETAMINOPHEN\HYDROCODONE
     Indication: Pain
     Route: 048
  14. PROZAC [Concomitant]
     Active Substance: FLUOXETINE HYDROCHLORIDE
     Dosage: 40 MG, QD
     Route: 048
  15. PREDNISONE [Concomitant]
     Active Substance: PREDNISONE
     Dosage: 20 MG, QD
     Route: 048
  16. ABILIFY [Concomitant]
     Active Substance: ARIPIPRAZOLE
     Route: 048
  17. ISENTRESS [Concomitant]
     Active Substance: RALTEGRAVIR POTASSIUM
     Route: 048
  18. LIDOCAINE\PRILOCAINE [Concomitant]
     Active Substance: LIDOCAINE\PRILOCAINE
     Route: 061
  19. DESCOVY [Concomitant]
     Active Substance: EMTRICITABINE\TENOFOVIR ALAFENAMIDE FUMARATE
     Route: 048
  20. HYDROCODONE [Concomitant]
     Active Substance: HYDROCODONE

REACTIONS (16)
  - Seizure [Recovering/Resolving]
  - Cancer pain [None]
  - Arthralgia [Recovering/Resolving]
  - Pain in extremity [Unknown]
  - Diarrhoea [Unknown]
  - Hypertension [Unknown]
  - Abdominal pain upper [Recovering/Resolving]
  - Gastrointestinal pain [Not Recovered/Not Resolved]
  - Hiccups [Not Recovered/Not Resolved]
  - Product availability issue [None]
  - Asthenia [Recovering/Resolving]
  - Nausea [Recovering/Resolving]
  - Abdominal pain [None]
  - Weight decreased [None]
  - Anaemia [None]
  - Herpes zoster [None]

NARRATIVE: CASE EVENT DATE: 20250102
